FAERS Safety Report 5843289-4 (Version None)
Quarter: 2008Q3

REPORT INFORMATION
  Report Type: 
  Country: None (occurrence: None)
  Receive Date: 20080813
  Receipt Date: 20080625
  Transmission Date: 20090109
  Serious: No
  Sender: FDA-Public Use
  Company Number: US-BAYER-200812887BCC

PATIENT
  Age: 71 Year
  Sex: Male
  Weight: 113 kg

DRUGS (7)
  1. ALEVE (CAPLET) [Suspect]
     Indication: BACK PAIN
     Dosage: TOTAL DAILY DOSE: 880 MG  UNIT DOSE: 220 MG
     Route: 048
     Dates: start: 20080601
  2. MADRON [Concomitant]
  3. ALLOPURINOL [Concomitant]
  4. SIMVASTATIN [Concomitant]
  5. GLIPIZIDE [Concomitant]
  6. ASCORBIC ACID [Concomitant]
  7. CALTRATE [Concomitant]

REACTIONS (2)
  - PRURITUS [None]
  - RASH [None]
